FAERS Safety Report 18115983 (Version 2)
Quarter: 2022Q1

REPORT INFORMATION
  Report Type: Spontaneous
  Country: US (occurrence: US)
  Receive Date: 20200806
  Receipt Date: 20220214
  Transmission Date: 20220424
  Serious: No
  Sender: FDA-Public Use
  Company Number: US-SANOFI-00214746

PATIENT
  Sex: Male

DRUGS (1)
  1. DUPIXENT [Suspect]
     Active Substance: DUPILUMAB
     Indication: Dermatitis atopic
     Dosage: DRUG STRUCTURE DOSAGE :   NA  DRUG INTERVAL DOSAGE :   NA  DRUG TREATMENT DURATION:  NA

REACTIONS (2)
  - Eye infection [Unknown]
  - Corneal implant [Unknown]
